FAERS Safety Report 9746766 (Version 1)
Quarter: 2013Q4

REPORT INFORMATION
  Report Type: Spontaneous
  Country: US (occurrence: US)
  Receive Date: 20131211
  Receipt Date: 20131211
  Transmission Date: 20140711
  Serious: No
  Sender: FDA-Public Use
  Company Number: US-009507513-1312USA002390

PATIENT
  Age: 51 Year
  Sex: Male

DRUGS (1)
  1. DULERA [Suspect]
     Indication: ASTHMA
     Dosage: 1 PUFF, ONCE
     Route: 055
     Dates: start: 20131202, end: 20131202

REACTIONS (1)
  - Heart rate irregular [Recovering/Resolving]
